FAERS Safety Report 4851094-0 (Version None)
Quarter: 2005Q4

REPORT INFORMATION
  Report Type: 
  Country: None (occurrence: None)
  Receive Date: 20051130
  Receipt Date: 20050826
  Transmission Date: 20060501
  Serious: No
  Sender: FDA-Public Use
  Company Number: FABR-11220

PATIENT
  Age: 38 Year
  Sex: Female
  Weight: 50.3 kg

DRUGS (3)
  1. FABRAZYME [Suspect]
     Indication: FABRY'S DISEASE
     Dosage: 50 MG Q2WKS IV
     Route: 042
     Dates: start: 20040816
  2. EFFEXOR [Concomitant]
  3. ORAL CONTRACEPTIVES [Concomitant]

REACTIONS (1)
  - HEARING IMPAIRED [None]
